FAERS Safety Report 9715711 (Version 1)
Quarter: 2013Q4

REPORT INFORMATION
  Report Type: Spontaneous
  Country: US (occurrence: US)
  Receive Date: 20131127
  Receipt Date: 20131127
  Transmission Date: 20140711
  Serious: Yes (Other)
  Sender: FDA-Public Use
  Company Number: US-JNJFOC-20131114188

PATIENT
  Age: 78 Year
  Sex: Female
  Weight: 60.33 kg

DRUGS (4)
  1. ZYRTEC IR [Suspect]
     Indication: MIDDLE EAR EFFUSION
     Route: 048
     Dates: start: 20131113, end: 20131115
  2. ZYRTEC IR [Suspect]
     Indication: EAR DISCOMFORT
     Route: 048
     Dates: start: 20131113, end: 20131115
  3. SYNTHROID [Concomitant]
     Indication: THYROID DISORDER
     Route: 065
  4. ACIPHEX [Concomitant]
     Indication: GASTRIC DISORDER
     Route: 065

REACTIONS (3)
  - Blood pressure increased [Recovered/Resolved]
  - Headache [Recovered/Resolved]
  - Off label use [Unknown]
